FAERS Safety Report 5000788-5 (Version None)
Quarter: 2006Q2

REPORT INFORMATION
  Report Type: 
  Country: None (occurrence: None)
  Receive Date: 20060512
  Receipt Date: 20051123
  Transmission Date: 20061013
  Serious: Yes (Hospitalization, Other)
  Sender: FDA-Public Use
  Company Number: US-MERCK-0511USA04400

PATIENT
  Age: 71 Year
  Sex: Female
  Weight: 30 kg

DRUGS (1)
  1. VIOXX [Suspect]
     Indication: PAIN
     Route: 048
     Dates: start: 20010101, end: 20010501

REACTIONS (6)
  - CEREBROVASCULAR ACCIDENT [None]
  - FLUID IMBALANCE [None]
  - HAEMORRHAGE [None]
  - JOINT INJECTION [None]
  - NERVE INJURY [None]
  - OVERDOSE [None]
